FAERS Safety Report 5013933-2 (Version None)
Quarter: 2006Q2

REPORT INFORMATION
  Report Type: 
  Country: None (occurrence: None)
  Receive Date: 20060525
  Receipt Date: 20060520
  Transmission Date: 20061013
  Serious: Yes (Other)
  Sender: FDA-Public Use
  Company Number: 222947

PATIENT
  Age: 63 Year
  Sex: Female

DRUGS (3)
  1. AVASTIN [Suspect]
     Indication: COLON CANCER
     Dosage: 5 MG/KG, Q2W, INTRAVENOUS
     Route: 042
     Dates: start: 20051015, end: 20060207
  2. IRINOTECAN HCL [Suspect]
     Indication: COLON CANCER
     Dates: start: 20051015
  3. FLUOROURACIL [Suspect]
     Indication: COLON CANCER
     Dates: start: 20051015

REACTIONS (2)
  - GASTRIC ULCER HAEMORRHAGE [None]
  - THROMBOSIS [None]
